FAERS Safety Report 5486700-3 (Version None)
Quarter: 2007Q4

REPORT INFORMATION
  Report Type: 
  Country: None (occurrence: None)
  Receive Date: 20071016
  Receipt Date: 20071012
  Transmission Date: 20080405
  Serious: Yes (Hospitalization, Disabling)
  Sender: FDA-Public Use
  Company Number: ZA-BAYER-200715483GDS

PATIENT
  Age: 72 Year
  Sex: Male
  Weight: 66 kg

DRUGS (42)
  1. MOXIFLOXACIN HCL [Suspect]
     Indication: SKIN INFECTION
     Route: 042
     Dates: start: 20070822, end: 20070824
  2. MOXIFLOXACIN HCL [Suspect]
     Route: 048
     Dates: start: 20070824, end: 20070831
  3. VITAMIN CAP [Concomitant]
     Indication: MEDICAL DIET
     Route: 048
     Dates: start: 20070911, end: 20070917
  4. ASCORBIC ACID [Concomitant]
     Indication: MEDICAL DIET
     Route: 048
     Dates: start: 20070911
  5. THIAMINE [Concomitant]
     Indication: MEDICAL DIET
     Route: 048
     Dates: start: 20070911
  6. DIPRIVAN [Concomitant]
     Indication: ANAESTHESIA
     Route: 042
     Dates: start: 20070913, end: 20070913
  7. PROSTIGMIN BROMIDE [Concomitant]
     Indication: DRUG USE FOR UNKNOWN INDICATION
     Route: 042
     Dates: start: 20070913, end: 20070913
  8. ROBINUL [Concomitant]
     Indication: PREMEDICATION
     Route: 042
     Dates: start: 20070913, end: 20070913
  9. TACRIUM [Concomitant]
     Indication: HYPOTONIA
     Route: 042
     Dates: start: 20070913, end: 20070913
  10. ZOFRAN [Concomitant]
     Indication: PROCEDURAL NAUSEA
     Route: 042
     Dates: start: 20070828, end: 20070828
  11. ZOFRAN [Concomitant]
     Route: 042
     Dates: start: 20070903, end: 20070903
  12. ZOFRAN [Concomitant]
     Route: 042
     Dates: start: 20070913, end: 20070913
  13. LIPITOR [Concomitant]
     Indication: DRUG USE FOR UNKNOWN INDICATION
     Route: 048
     Dates: start: 20050101
  14. CONCOR [Concomitant]
     Indication: HYPERTENSION
     Route: 048
     Dates: start: 20050101
  15. ASPIRIN [Concomitant]
     Indication: CEREBROVASCULAR ACCIDENT PROPHYLAXIS
     Route: 048
     Dates: start: 20050101
  16. GLUCOPHAGE [Concomitant]
     Indication: DIABETES MELLITUS
     Route: 048
     Dates: start: 20070701
  17. ZOLPIDEM TARTRATE [Concomitant]
     Indication: INSOMNIA
     Route: 048
     Dates: start: 20070701
  18. NEXIUM [Concomitant]
     Indication: GASTROOESOPHAGEAL REFLUX DISEASE
     Route: 048
     Dates: start: 20070701
  19. SLOW MAG [Concomitant]
     Indication: MUSCLE SPASMS
     Route: 048
     Dates: start: 20050101
  20. DIAMICRON [Concomitant]
     Indication: DIABETES MELLITUS
     Route: 048
     Dates: start: 20070701
  21. TARGOCID [Concomitant]
     Indication: DRUG USE FOR UNKNOWN INDICATION
     Route: 042
     Dates: start: 20070829, end: 20070903
  22. SYNAP FORTE [Concomitant]
     Indication: PAIN
     Route: 048
     Dates: start: 20070822, end: 20070901
  23. ASPIRIN [Concomitant]
     Indication: PAIN
     Route: 048
     Dates: start: 20070822
  24. DORMICUM [Concomitant]
     Indication: PREMEDICATION
     Route: 042
     Dates: start: 20070904, end: 20070904
  25. DORMICUM [Concomitant]
     Route: 048
     Dates: start: 20070828, end: 20070828
  26. PERFALGAN [Concomitant]
     Indication: PAIN
     Route: 042
     Dates: start: 20070828, end: 20070829
  27. PERFALGAN [Concomitant]
     Route: 042
     Dates: start: 20070913, end: 20070913
  28. PERFALGAN [Concomitant]
     Route: 042
     Dates: start: 20070901, end: 20070903
  29. BACTROBAN [Concomitant]
     Indication: SKIN INFECTION
     Route: 061
     Dates: start: 20070903, end: 20070913
  30. MERONEM [Concomitant]
     Indication: PNEUMONIA KLEBSIELLA
     Route: 042
     Dates: start: 20070903
  31. BIOSCRUB [Concomitant]
     Indication: INFECTION PROPHYLAXIS
     Route: 065
     Dates: start: 20070903
  32. ACTRAPID [Concomitant]
     Indication: DRUG USE FOR UNKNOWN INDICATION
     Route: 058
     Dates: start: 20070903
  33. TRAMACET [Concomitant]
     Indication: PAIN
     Route: 048
     Dates: start: 20070904, end: 20070904
  34. TRAMACET [Concomitant]
     Route: 048
     Dates: start: 20070915
  35. KYTRIL [Concomitant]
     Indication: PROCEDURAL NAUSEA
     Route: 042
     Dates: start: 20070904, end: 20070904
  36. KYTRIL [Concomitant]
     Route: 042
     Dates: start: 20070915, end: 20070915
  37. EPHEDRINE [Concomitant]
     Indication: BLOOD PRESSURE MANAGEMENT
     Route: 042
     Dates: start: 20070904, end: 20070904
  38. SUFENTA [Concomitant]
     Indication: ANAESTHESIA
     Route: 042
     Dates: start: 20070904, end: 20070904
  39. REMICAINE [Concomitant]
     Indication: ANAESTHESIA
     Route: 042
     Dates: start: 20070904, end: 20070904
  40. REMICAINE [Concomitant]
     Route: 042
     Dates: start: 20070913, end: 20070913
  41. MORPHINE [Concomitant]
     Indication: PAIN
     Route: 042
     Dates: start: 20070913
  42. SUBLIMAZE PRESERVATIVE FREE [Concomitant]
     Indication: ANAESTHESIA
     Route: 042
     Dates: start: 20070913, end: 20070913

REACTIONS (3)
  - FOOT AMPUTATION [None]
  - LEG AMPUTATION [None]
  - WOUND DEBRIDEMENT [None]
